FAERS Safety Report 25681432 (Version 4)
Quarter: 2025Q4

REPORT INFORMATION
  Report Type: Spontaneous
  Country: EU (occurrence: EU)
  Receive Date: 20250814
  Receipt Date: 20251124
  Transmission Date: 20260118
  Serious: Yes (Other)
  Sender: pharmaAND
  Company Number: None

PATIENT
  Age: 67 Year
  Sex: Female
  Weight: 62 kg

DRUGS (3)
  1. RUBRACA [Suspect]
     Active Substance: RUCAPARIB CAMSYLATE
     Indication: Serous cystadenocarcinoma ovary
     Dosage: 600 MG 2 TIMES PER DAY
     Route: 048
     Dates: start: 20241220, end: 20250528
  2. RUBRACA [Suspect]
     Active Substance: RUCAPARIB CAMSYLATE
     Indication: Serous cystadenocarcinoma ovary
     Dosage: 500 MG 2 TIMES PER DAY
     Route: 048
     Dates: start: 20250617, end: 20250702
  3. RUBRACA [Suspect]
     Active Substance: RUCAPARIB CAMSYLATE
     Indication: Serous cystadenocarcinoma ovary
     Dosage: 400 MG 2 TIMES PER DAY (MORNING AND EVENING)
     Route: 048
     Dates: start: 20250807

REACTIONS (1)
  - Hyperbilirubinaemia [Recovering/Resolving]

NARRATIVE: CASE EVENT DATE: 20250201
